FAERS Safety Report 8976089 (Version 1)
Quarter: 2012Q4

REPORT INFORMATION
  Report Type: Report from Study
  Country: GB (occurrence: GB)
  Receive Date: 20121220
  Receipt Date: 20121220
  Transmission Date: 20130627
  Serious: Yes (Hospitalization)
  Sender: FDA-Public Use
  Company Number: GB-PFIZER INC-GB-WYE-H09844909

PATIENT
  Age: 58 Year
  Sex: Male

DRUGS (29)
  1. RAPAMUNE [Suspect]
     Indication: PROPHYLAXIS AGAINST RENAL TRANSPLANT REJECTION
     Dosage: UNK
     Route: 065
  2. PREDNISOLONE [Suspect]
     Indication: PROPHYLAXIS AGAINST TRANSPLANT REJECTION
     Dosage: 5 mg, 1x/day
     Route: 048
     Dates: start: 20040402, end: 20070402
  3. PREDNISOLONE [Suspect]
     Dosage: 4 mg, 1x/day
     Route: 048
     Dates: start: 20050926
  4. PREDNISOLONE [Suspect]
     Dosage: 3 mg, 1x/day
     Route: 048
     Dates: start: 20051219
  5. PREDNISOLONE [Suspect]
     Dosage: 2 mg, 1x/day
     Route: 048
     Dates: start: 20061002
  6. PREDNISOLONE [Suspect]
     Dosage: 1 mg, 1x/day
     Route: 048
     Dates: start: 20070115, end: 20070402
  7. ZENAPAX [Suspect]
     Dosage: 170 mg, single
     Route: 042
     Dates: start: 20040401, end: 20040401
  8. ZENAPAX [Suspect]
     Dosage: 85 mg, cyclic (once every two weeks)
     Route: 042
     Dates: start: 20040415, end: 20040528
  9. MYCOPHENOLATE MOFETIL [Suspect]
     Dosage: 1.0 g, 2x/day
     Route: 048
     Dates: start: 20040401
  10. TACROLIMUS [Suspect]
     Dosage: 1 mg, 1x/day capsule
     Route: 048
     Dates: start: 20040401
  11. TACROLIMUS [Suspect]
     Dosage: 2 mg, 2x/day capsule
     Route: 048
     Dates: start: 20040514
  12. TACROLIMUS [Suspect]
     Dosage: 2 mg, 2x/day tablet
     Route: 048
     Dates: start: 20040514, end: 20040514
  13. ACETYLSALICYLIC ACID [Concomitant]
     Dosage: UNK
     Route: 048
     Dates: start: 20040402, end: 20040906
  14. CO-TRIMOXAZOLE [Concomitant]
     Dosage: 480 mg, 1x/day
     Route: 048
     Dates: start: 20040402, end: 20041011
  15. ADALAT - SLOW RELEASE [Concomitant]
     Dosage: 40 mg, 2x/day
     Route: 048
     Dates: start: 20040430
  16. AMLODIPINE BESILATE [Concomitant]
     Dosage: 10 mg, 1x/day
     Route: 048
     Dates: start: 20040401, end: 20040430
  17. AMOXICILLIN [Concomitant]
     Dosage: 500 mg, 3x/day
     Route: 048
     Dates: start: 20040430, end: 20040505
  18. AMOXICILLIN [Concomitant]
     Dosage: 500 mg, 3x/day
     Route: 048
     Dates: start: 20040705, end: 20040710
  19. ATENOLOL [Concomitant]
     Dosage: 100 mg, 1x/day
     Route: 048
     Dates: start: 20040514
  20. CEPHALEXIN [Concomitant]
     Dosage: 250 mg, 1x/day
     Route: 048
     Dates: start: 20040909, end: 20041208
  21. CIPROFLOXACIN [Concomitant]
     Dosage: 500 mg, every 2 days
     Route: 048
     Dates: start: 20040514, end: 20040519
  22. CIPROFLOXACIN [Concomitant]
     Dosage: 250 mg, 1x/day
     Route: 048
     Dates: start: 20050117
  23. FRUSEMIDE [Concomitant]
     Dosage: 40 mg, 1x/day
     Route: 048
     Dates: start: 20040412
  24. FRUSEMIDE [Concomitant]
     Dosage: 60 mg, 1x/day
     Route: 048
     Dates: start: 20050117
  25. DOXAZOSIN [Concomitant]
     Dosage: 4 mg, 2x/day
     Route: 048
     Dates: start: 20040612
  26. LACTULOSE [Concomitant]
     Dosage: 30 ml, 2x/day
     Route: 048
     Dates: start: 20040405, end: 20040408
  27. LOPERAMIDE [Concomitant]
     Dosage: 2 mg, 3x/day
     Route: 048
     Dates: start: 20040411, end: 20040419
  28. RANITIDINE [Concomitant]
     Dosage: 150 mg, 2x/day
     Route: 048
     Dates: start: 20040401
  29. SENNA [Concomitant]
     Dosage: UNK
     Route: 048
     Dates: start: 20040405

REACTIONS (5)
  - Bladder obstruction [Recovered/Resolved]
  - Urinary retention [Recovered/Resolved]
  - Pyrexia [Recovered/Resolved]
  - Pyrexia [Recovered/Resolved]
  - Lower respiratory tract infection [Recovered/Resolved]
